FAERS Safety Report 8174077 (Version 3)
Quarter: 2012Q4

REPORT INFORMATION
  Report Type: 
  Country: IT (occurrence: IT)
  Receive Date: 20111010
  Receipt Date: 20120928
  Transmission Date: 20130627
  Serious: Yes (Death)
  Sender: FDA-Public Use
  Company Number: IT-SANOFI-AVENTIS-2011SA065357

PATIENT
  Age: 66 Year
  Sex: Male

DRUGS (4)
  1. TAXOTERE [Suspect]
     Indication: PROSTATE CANCER METASTATIC
     Route: 041
     Dates: start: 20110909, end: 20110909
  2. ELIGARD [Concomitant]
     Indication: DRUG USE FOR UNKNOWN INDICATION
  3. NATECAL [Concomitant]
     Indication: DRUG USE FOR UNKNOWN INDICATION
  4. ZOMETA [Concomitant]
     Indication: DRUG USE FOR UNKNOWN INDICATION

REACTIONS (11)
  - Renal failure acute [Fatal]
  - Multi-organ failure [Fatal]
  - Mucosal inflammation [Fatal]
  - Anaemia [Fatal]
  - Cardiotoxicity [Fatal]
  - Thrombocytopenia [Fatal]
  - Anaphylactic reaction [Fatal]
  - Hypersensitivity [Fatal]
  - Hypotension [Fatal]
  - Skin toxicity [Fatal]
  - Conjunctivitis [Fatal]
